FAERS Safety Report 20061290 (Version 3)
Quarter: 2021Q4

REPORT INFORMATION
  Report Type: Spontaneous
  Country: JP (occurrence: JP)
  Receive Date: 20211112
  Receipt Date: 20211206
  Transmission Date: 20220303
  Serious: Yes (Hospitalization, Disabling, Other)
  Sender: FDA-Public Use
  Company Number: JP-TAKEDA-2021TJP116482

PATIENT
  Age: 8 Decade
  Sex: Female

DRUGS (1)
  1. NINLARO [Suspect]
     Active Substance: IXAZOMIB CITRATE
     Indication: Plasma cell myeloma
     Dosage: 2.3 MILLIGRAM, 3/MONTH
     Route: 048
     Dates: start: 20210712

REACTIONS (4)
  - Periprosthetic fracture [Recovered/Resolved]
  - Decreased activity [Unknown]
  - Dementia [Unknown]
  - Fall [Unknown]
